FAERS Safety Report 16776264 (Version 3)
Quarter: 2020Q2

REPORT INFORMATION
  Report Type: Spontaneous
  Country: US (occurrence: US)
  Receive Date: 20190905
  Receipt Date: 20200522
  Transmission Date: 20200713
  Serious: No
  Sender: FDA-Public Use
  Company Number: US-PFIZER INC-2019383566

PATIENT
  Age: 16 Month
  Sex: Female
  Weight: 8.39 kg

DRUGS (1)
  1. INFANTS ADVIL CONCENTRATED DROPS [Suspect]
     Active Substance: IBUPROFEN
     Indication: TEETHING
     Dosage: UNK
     Route: 048
     Dates: start: 201908, end: 201908

REACTIONS (7)
  - Gastric disorder [Recovered/Resolved]
  - Mucous stools [Recovered/Resolved]
  - Diarrhoea [Recovered/Resolved]
  - Infantile vomiting [Recovered/Resolved]
  - Screaming [Recovered/Resolved]
  - Frequent bowel movements [Recovered/Resolved]
  - Discomfort [Recovered/Resolved]

NARRATIVE: CASE EVENT DATE: 201908
